FAERS Safety Report 13856598 (Version 1)
Quarter: 2017Q3

REPORT INFORMATION
  Report Type: Spontaneous
  Country: US (occurrence: US)
  Receive Date: 20170810
  Receipt Date: 20170810
  Transmission Date: 20171127
  Serious: No
  Sender: FDA-Public Use
  Company Number: US-ROCHE-1345290

PATIENT
  Sex: Female

DRUGS (1)
  1. TAMIFLU [Suspect]
     Active Substance: OSELTAMIVIR PHOSPHATE
     Indication: H1N1 INFLUENZA
     Route: 065
     Dates: start: 20140131

REACTIONS (5)
  - Blister [Unknown]
  - Swelling face [Unknown]
  - Erythema [Unknown]
  - Pharyngeal oedema [Unknown]
  - Skin exfoliation [Unknown]
